FAERS Safety Report 21167372 (Version 2)
Quarter: 2022Q3

REPORT INFORMATION
  Report Type: Spontaneous
  Country: US (occurrence: US)
  Receive Date: 20220803
  Receipt Date: 20220901
  Transmission Date: 20221027
  Serious: No
  Sender: FDA-Public Use
  Company Number: US-ELI_LILLY_AND_COMPANY-US202207005932

PATIENT
  Age: 65 Year
  Sex: Female

DRUGS (1)
  1. BEBTELOVIMAB [Suspect]
     Active Substance: BEBTELOVIMAB
     Indication: COVID-19
     Dosage: UNK UNK, UNKNOWN
     Route: 065
     Dates: start: 20220707, end: 20220707

REACTIONS (10)
  - Fatigue [Unknown]
  - Muscular weakness [Unknown]
  - Cough [Unknown]
  - Rales [Recovered/Resolved]
  - Ageusia [Unknown]
  - Anosmia [Unknown]
  - Dysphonia [Recovering/Resolving]
  - Oropharyngeal discomfort [Recovered/Resolved]
  - Headache [Unknown]
  - Drug ineffective [Unknown]

NARRATIVE: CASE EVENT DATE: 20220707
